FAERS Safety Report 4492003-6 (Version None)
Quarter: 2004Q4

REPORT INFORMATION
  Report Type: 
  Country: None (occurrence: None)
  Receive Date: 20041101
  Receipt Date: 20041014
  Transmission Date: 20050328
  Serious: Yes (Death, Hospitalization)
  Sender: FDA-Public Use
  Company Number: A01200404895

PATIENT
  Age: 82 Year
  Sex: Female

DRUGS (3)
  1. PLAVIX [Suspect]
     Dosage: 75 MG OD
     Route: 048
     Dates: start: 20040913, end: 20040915
  2. URSACOL (URSODEOXYCHOLIC ACID) [Concomitant]
  3. FORZAAR (LOSARTAN POTASSIUM + HYDROCHLOROTHIAZIDE) [Concomitant]

REACTIONS (4)
  - ACUTE RESPIRATORY DISTRESS SYNDROME [None]
  - ANAEMIA [None]
  - ERYTHROPOIESIS ABNORMAL [None]
  - RENAL FAILURE [None]
